FAERS Safety Report 16166938 (Version 4)
Quarter: 2019Q4

REPORT INFORMATION
  Report Type: Report from Study
  Country: AU (occurrence: AU)
  Receive Date: 20190408
  Receipt Date: 20191228
  Transmission Date: 20200122
  Serious: Yes (Hospitalization)
  Sender: FDA-Public Use
  Company Number: AU-ALEXION-A201900502

PATIENT
  Age: 45 Year
  Sex: Male
  Weight: 82.3 kg

DRUGS (6)
  1. COVERSYL                           /00790702/ [Concomitant]
     Active Substance: PERINDOPRIL
     Dosage: 5 MG, UNK
     Route: 048
  2. SOLIRIS [Suspect]
     Active Substance: ECULIZUMAB
     Indication: PAROXYSMAL NOCTURNAL HAEMOGLOBINURIA
     Dosage: UNK
     Route: 065
  3. SOLIRIS [Suspect]
     Active Substance: ECULIZUMAB
     Dosage: 900 MG, Q2W
     Route: 042
  4. COVERSYL                           /00790702/ [Concomitant]
     Active Substance: PERINDOPRIL
     Indication: HYPERTENSION
     Dosage: 10 MG, UNK
     Route: 048
     Dates: start: 20190102
  5. SOLIRIS [Suspect]
     Active Substance: ECULIZUMAB
     Dosage: 900 MG, Q2W
     Route: 042
     Dates: start: 201806
  6. SOLIRIS [Suspect]
     Active Substance: ECULIZUMAB
     Dosage: 900 MG, Q2W
     Route: 042

REACTIONS (13)
  - Blood pressure increased [Unknown]
  - Diarrhoea [Recovering/Resolving]
  - Stress [Unknown]
  - Sinusitis [Not Recovered/Not Resolved]
  - Lethargy [Recovering/Resolving]
  - Urine abnormality [Recovering/Resolving]
  - Malaise [Unknown]
  - Vomiting [Unknown]
  - Abdominal pain upper [Recovering/Resolving]
  - Chromaturia [Recovering/Resolving]
  - Chest pain [Not Recovered/Not Resolved]
  - Influenza like illness [Unknown]
  - Nausea [Unknown]

NARRATIVE: CASE EVENT DATE: 20190320
